FAERS Safety Report 9781630 (Version 4)
Quarter: 2014Q2

REPORT INFORMATION
  Report Type: Spontaneous
  Country: IT (occurrence: IT)
  Receive Date: 20131224
  Receipt Date: 20140401
  Transmission Date: 20141212
  Serious: Yes (Hospitalization)
  Sender: FDA-Public Use
  Company Number: IT-MERCK-1312ITA008323

PATIENT
  Age: 62 Year
  Sex: Female
  Weight: 68 kg

DRUGS (6)
  1. REBETOL [Suspect]
     Indication: CHRONIC HEPATITIS C
     Dosage: DAILY 800 MG, DAILY
     Route: 048
     Dates: start: 20130927, end: 20131022
  2. REBETOL [Interacting]
     Dosage: DAILY 1000 MG, DAILY
     Route: 048
     Dates: start: 20130719, end: 20130926
  3. PEGASYS [Interacting]
     Indication: CHRONIC HEPATITIS C
     Dosage: 180 MCG WEEKLY, WEEKLY
     Dates: start: 20130719, end: 20131018
  4. TELAPREVIR [Interacting]
     Indication: CHRONIC HEPATITIS C
     Dosage: DAILY 2250 MG, DAILY
     Route: 048
     Dates: start: 20130816, end: 20131022
  5. NEORECORMON [Concomitant]
     Indication: ANAEMIA
     Dosage: 30000 IU WEEKLY, WEEKLY
     Route: 058
     Dates: start: 20130927, end: 20131114
  6. ZARZIO [Concomitant]
     Indication: NEUTROPENIA
     Dosage: 90 IU  (THREE VIALS) WEEKLY, WEEKLY
     Dates: start: 20131011, end: 20131022

REACTIONS (1)
  - Sepsis [Recovered/Resolved with Sequelae]
